FAERS Safety Report 24858550 (Version 1)
Quarter: 2025Q1

REPORT INFORMATION
  Report Type: Spontaneous
  Country: GB (occurrence: GB)
  Receive Date: 20250117
  Receipt Date: 20250117
  Transmission Date: 20250408
  Serious: Yes (Death, Hospitalization)
  Sender: AMGEN
  Company Number: GB-AMGEN-GBRSP2025008403

PATIENT

DRUGS (1)
  1. ADALIMUMAB [Suspect]
     Active Substance: ADALIMUMAB
     Indication: Psoriasis
     Route: 065

REACTIONS (2)
  - Death [Fatal]
  - Unevaluable event [Unknown]
